FAERS Safety Report 7338045-4 (Version None)
Quarter: 2011Q1

REPORT INFORMATION
  Report Type: 
  Country: None (occurrence: None)
  Receive Date: 20110308
  Receipt Date: 20110228
  Transmission Date: 20110831
  Serious: Yes (Other)
  Sender: FDA-Public Use
  Company Number: CA-JNJFOC-20110301473

PATIENT
  Age: 55 Year
  Sex: Female
  Weight: 62.6 kg

DRUGS (5)
  1. NICODERM STEP 1 [Suspect]
     Indication: SMOKING CESSATION THERAPY
     Route: 061
  2. CES [Concomitant]
     Indication: HORMONE REPLACEMENT THERAPY
     Route: 061
  3. CALTRATE [Concomitant]
     Indication: PRODUCT USED FOR UNKNOWN INDICATION
     Route: 065
  4. APO-PROPRANOLOL [Concomitant]
     Indication: TREMOR
     Route: 061
  5. VITAMINS NOS [Concomitant]
     Indication: PRODUCT USED FOR UNKNOWN INDICATION
     Route: 061

REACTIONS (4)
  - LOSS OF CONSCIOUSNESS [None]
  - OVERDOSE [None]
  - VOMITING [None]
  - TREATMENT NONCOMPLIANCE [None]
